FAERS Safety Report 5900408-9 (Version None)
Quarter: 2008Q3

REPORT INFORMATION
  Report Type: 
  Country: None (occurrence: None)
  Receive Date: 20080926
  Receipt Date: 20080915
  Transmission Date: 20090109
  Serious: Yes (Hospitalization)
  Sender: FDA-Public Use
  Company Number: DE-ELI_LILLY_AND_COMPANY-DE200804006601

PATIENT
  Sex: Male

DRUGS (6)
  1. CYMBALTA [Suspect]
     Indication: DEPRESSION
     Dosage: 30 MG, DAILY (1/D)
     Route: 048
     Dates: start: 20080401, end: 20080421
  2. CYMBALTA [Suspect]
     Dosage: 60 MG, DAILY (1/D)
     Route: 048
     Dates: start: 20080422, end: 20080429
  3. FENTANYL [Concomitant]
     Dosage: UNK, UNKNOWN
     Route: 065
     Dates: end: 20080421
  4. FENTANYL [Concomitant]
     Dosage: UNK, UNKNOWN (HIGHER DOSE)
     Route: 065
     Dates: start: 20080422, end: 20080101
  5. ANTINEOPLASTIC AGENTS [Concomitant]
     Dosage: UNK, UNKNOWN
     Route: 065
  6. ANTIHYPERTENSIVES [Concomitant]
     Dosage: UNK, UNKNOWN
     Route: 065

REACTIONS (2)
  - MYOCLONUS [None]
  - PARAESTHESIA [None]
